FAERS Safety Report 22053599 (Version 1)
Quarter: 2023Q1

REPORT INFORMATION
  Report Type: Spontaneous
  Country: US (occurrence: US)
  Receive Date: 20230302
  Receipt Date: 20230302
  Transmission Date: 20230418
  Serious: Yes (Other)
  Sender: FDA-Public Use
  Company Number: US-NEBO-PC009935

PATIENT

DRUGS (1)
  1. MONOFERRIC [Suspect]
     Active Substance: FERRIC DERISOMALTOSE
     Indication: Product used for unknown indication
     Dosage: TEST DOSE: 250 ML BAG OVER 30 MINUTES
     Route: 050

REACTIONS (2)
  - Feeling hot [Unknown]
  - Loss of consciousness [Unknown]
